FAERS Safety Report 8027241-9 (Version None)
Quarter: 2012Q1

REPORT INFORMATION
  Report Type: 
  Country: None (occurrence: None)
  Receive Date: 20120106
  Receipt Date: 20111223
  Transmission Date: 20120608
  Serious: Yes (Other)
  Sender: FDA-Public Use
  Company Number: TW-UCBSA-046888

PATIENT
  Age: 24 Month
  Sex: Female

DRUGS (3)
  1. PHENOBARBITAL TAB [Concomitant]
  2. CLONAZEPAM [Concomitant]
  3. KEPPRA [Suspect]
     Indication: CONVULSION

REACTIONS (1)
  - RENAL TUBULAR ACIDOSIS [None]
